FAERS Safety Report 8180615-8 (Version None)
Quarter: 2012Q1

REPORT INFORMATION
  Report Type: 
  Country: None (occurrence: None)
  Receive Date: 20120302
  Receipt Date: 20120223
  Transmission Date: 20120608
  Serious: Yes (Hospitalization)
  Sender: FDA-Public Use
  Company Number: JP-ROCHE-1037838

PATIENT
  Age: 70 Year
  Sex: Female
  Weight: 48 kg

DRUGS (19)
  1. MAGMITT [Concomitant]
     Indication: CONSTIPATION
     Dates: start: 20100813
  2. ISODINE [Concomitant]
     Dates: start: 20110822
  3. CYCLOPHOSPHAMIDE [Suspect]
     Indication: NON-HODGKIN'S LYMPHOMA
     Route: 042
     Dates: start: 20111019, end: 20111117
  4. LANSOPRAZOLE [Concomitant]
     Indication: GASTRITIS
     Dates: start: 20100829
  5. SELBEX [Concomitant]
     Dates: start: 20100813
  6. PURSENNID [Concomitant]
     Indication: CONSTIPATION
     Dates: start: 20111012
  7. LENDORMIN [Concomitant]
     Indication: INSOMNIA
     Dates: start: 20100822
  8. HYALURONATE SODIUM [Concomitant]
     Indication: CONJUNCTIVITIS
  9. LEVOFLOXACIN [Concomitant]
     Dates: start: 20111129
  10. INOTUZUMAB OZOGAMICIN [Suspect]
     Indication: NON-HODGKIN'S LYMPHOMA
     Route: 042
     Dates: start: 20111020, end: 20111118
  11. RHUBARB [Concomitant]
     Indication: CONSTIPATION
     Dates: start: 20111012
  12. LIVOSTIN EYE DROPS [Concomitant]
     Indication: CONJUNCTIVITIS
  13. OXYCODONE HCL [Suspect]
     Indication: CANCER PAIN
     Route: 048
     Dates: start: 20111012
  14. LENDORMIN [Concomitant]
     Dates: start: 20111129
  15. MABTHERA [Suspect]
     Indication: NON-HODGKIN'S LYMPHOMA
     Route: 042
     Dates: start: 20111019, end: 20111117
  16. VINCRISTINE [Suspect]
     Indication: NON-HODGKIN'S LYMPHOMA
     Route: 042
     Dates: start: 20111019, end: 20111117
  17. PREDNISONE TAB [Suspect]
     Indication: NON-HODGKIN'S LYMPHOMA
     Route: 048
     Dates: start: 20111019, end: 20111121
  18. PANTOSIN [Concomitant]
     Indication: CONSTIPATION
     Dates: start: 20100813
  19. POSTERISAN FORTE [Concomitant]
     Indication: HAEMORRHOIDS
     Dates: start: 20111115

REACTIONS (1)
  - MALLORY-WEISS SYNDROME [None]
